FAERS Safety Report 24682297 (Version 1)
Quarter: 2024Q4

REPORT INFORMATION
  Report Type: Spontaneous
  Country: AU (occurrence: AU)
  Receive Date: 20241130
  Receipt Date: 20241130
  Transmission Date: 20250115
  Serious: Yes (Hospitalization, Other)
  Sender: ACCORD
  Company Number: AU-Accord-456833

PATIENT

DRUGS (57)
  1. AMITRIPTYLINE [Suspect]
     Active Substance: AMITRIPTYLINE
     Indication: Product used for unknown indication
  2. ALLOPURINOL [Suspect]
     Active Substance: ALLOPURINOL
     Indication: Product used for unknown indication
  3. ATORVASTATIN [Suspect]
     Active Substance: ATORVASTATIN
     Indication: Product used for unknown indication
  4. EZETIMIBE [Suspect]
     Active Substance: EZETIMIBE
     Indication: Product used for unknown indication
  5. FUROSEMIDE [Suspect]
     Active Substance: FUROSEMIDE
     Indication: Product used for unknown indication
  6. HYDROCHLOROTHIAZIDE [Suspect]
     Active Substance: HYDROCHLOROTHIAZIDE
     Indication: Product used for unknown indication
  7. RAMIPRIL [Suspect]
     Active Substance: RAMIPRIL
     Indication: Product used for unknown indication
  8. ROSUVASTATIN CALCIUM [Suspect]
     Active Substance: ROSUVASTATIN CALCIUM
     Indication: Product used for unknown indication
  9. SIMVASTATIN [Suspect]
     Active Substance: SIMVASTATIN
     Indication: Product used for unknown indication
  10. ASPIRIN [Suspect]
     Active Substance: ASPIRIN
     Indication: Product used for unknown indication
  11. AMPICILLIN SODIUM [Suspect]
     Active Substance: AMPICILLIN SODIUM
     Indication: Product used for unknown indication
  12. ATENOLOL [Suspect]
     Active Substance: ATENOLOL
     Indication: Product used for unknown indication
  13. CEFTRIAXONE [Suspect]
     Active Substance: CEFTRIAXONE
     Indication: Product used for unknown indication
  14. DEXAMETHASONE [Suspect]
     Active Substance: DEXAMETHASONE
     Indication: Product used for unknown indication
  15. FAMCICLOVIR [Suspect]
     Active Substance: FAMCICLOVIR
     Indication: Product used for unknown indication
  16. IRBESARTAN [Suspect]
     Active Substance: IRBESARTAN
     Indication: Product used for unknown indication
  17. METFORMIN HYDROCHLORIDE [Suspect]
     Active Substance: METFORMIN HYDROCHLORIDE
     Indication: Product used for unknown indication
  18. METRONIDAZOLE [Suspect]
     Active Substance: METRONIDAZOLE
     Indication: Product used for unknown indication
  19. OMEPRAZOLE [Suspect]
     Active Substance: OMEPRAZOLE
     Indication: Product used for unknown indication
  20. ACETAMINOPHEN [Suspect]
     Active Substance: ACETAMINOPHEN
     Indication: Product used for unknown indication
  21. PERINDOPRIL [Suspect]
     Active Substance: PERINDOPRIL
     Indication: Product used for unknown indication
  22. TELMISARTAN [Suspect]
     Active Substance: TELMISARTAN
     Indication: Product used for unknown indication
  23. VALSARTAN [Suspect]
     Active Substance: VALSARTAN
     Indication: Product used for unknown indication
  24. VENLAFAXINE [Suspect]
     Active Substance: VENLAFAXINE HYDROCHLORIDE
     Indication: Product used for unknown indication
  25. ACETAMINOPHEN AND CODEINE [Concomitant]
     Active Substance: ACETAMINOPHEN\CODEINE PHOSPHATE
  26. AMIODARONE [Concomitant]
     Active Substance: AMIODARONE
  27. AMOXICILLIN AND CLAVULANATE POTASSIUM [Concomitant]
     Active Substance: AMOXICILLIN\CLAVULANATE POTASSIUM
  28. CALCIUM CARBONATE [Concomitant]
     Active Substance: CALCIUM CARBONATE
  29. CARBAMAZEPINE [Concomitant]
     Active Substance: CARBAMAZEPINE
  30. CELECOXIB [Concomitant]
     Active Substance: CELECOXIB
  31. CYCLOSPORINE [Concomitant]
     Active Substance: CYCLOSPORINE
  32. CLONIDINE [Concomitant]
     Active Substance: CLONIDINE
  33. DICLOFENAC [Concomitant]
     Active Substance: DICLOFENAC
  34. DOXYCYCLINE [Concomitant]
     Active Substance: DOXYCYCLINE
  35. ENTECAVIR [Concomitant]
     Active Substance: ENTECAVIR
  36. EVEROLIMUS [Concomitant]
     Active Substance: EVEROLIMUS
  37. FENOFIBRATE [Concomitant]
     Active Substance: FENOFIBRATE
  38. HYDROCORTISONE [Concomitant]
     Active Substance: HYDROCORTISONE
  39. IBUPROFEN [Concomitant]
     Active Substance: IBUPROFEN
  40. LACOSAMIDE [Concomitant]
     Active Substance: LACOSAMIDE
  41. LEVETIRACETAM [Concomitant]
     Active Substance: LEVETIRACETAM
  42. MIRTAZAPINE [Concomitant]
     Active Substance: MIRTAZAPINE
  43. MYCOPHENOLATE MOFETIL [Concomitant]
     Active Substance: MYCOPHENOLATE MOFETIL
  44. NAPROXEN [Concomitant]
     Active Substance: NAPROXEN
  45. DIETHYLSTILBESTROL [Concomitant]
     Active Substance: DIETHYLSTILBESTROL
  46. OLANZAPINE [Concomitant]
     Active Substance: OLANZAPINE
  47. PRAVASTATIN [Concomitant]
     Active Substance: PRAVASTATIN
  48. PREDNISOLONE [Concomitant]
     Active Substance: PREDNISOLONE
  49. PREDNISONE [Concomitant]
     Active Substance: PREDNISONE
  50. PROPOFOL [Concomitant]
     Active Substance: PROPOFOL
  51. QUETIAPINE [Concomitant]
     Active Substance: QUETIAPINE
  52. RANITIDINE [Concomitant]
     Active Substance: RANITIDINE
  53. SERTRALINE [Concomitant]
     Active Substance: SERTRALINE HYDROCHLORIDE
  54. SITAGLIPTIN [Concomitant]
     Active Substance: SITAGLIPTIN
  55. TACROLIMUS [Concomitant]
     Active Substance: TACROLIMUS
  56. SULFAMETHOXAZOLE\TRIMETHOPRIM [Concomitant]
     Active Substance: SULFAMETHOXAZOLE\TRIMETHOPRIM
  57. VALPROIC ACID [Concomitant]
     Active Substance: VALPROIC ACID

REACTIONS (1)
  - Pancreatitis [Unknown]
